FAERS Safety Report 9640687 (Version 3)
Quarter: 2014Q1

REPORT INFORMATION
  Report Type: Report from Study
  Country: US (occurrence: US)
  Receive Date: 20131023
  Receipt Date: 20140318
  Transmission Date: 20141002
  Serious: Yes (Hospitalization)
  Sender: FDA-Public Use
  Company Number: US-VERTEX PHARMACEUTICALS INC-2013-010575

PATIENT
  Age: 22 Year
  Sex: Female

DRUGS (3)
  1. VX-770 [Suspect]
     Indication: CYSTIC FIBROSIS
     Dosage: 150 MG, BID
     Dates: start: 20120502, end: 201312
  2. VX-770 [Suspect]
     Dosage: UNK
     Dates: start: 201212, end: 201301
  3. VX-770 [Suspect]
     Dosage: UNK
     Dates: start: 201310

REACTIONS (1)
  - Cholelithiasis [Recovered/Resolved]
